FAERS Safety Report 13535953 (Version 2)
Quarter: 2017Q3

REPORT INFORMATION
  Report Type: Spontaneous
  Country: US (occurrence: US)
  Receive Date: 20170511
  Receipt Date: 20170731
  Transmission Date: 20171127
  Serious: Yes (Other)
  Sender: FDA-Public Use
  Company Number: US-PFIZER INC-2017197722

PATIENT
  Age: 67 Year
  Sex: Female

DRUGS (17)
  1. XELJANZ XR [Suspect]
     Active Substance: TOFACITINIB CITRATE
     Indication: RHEUMATOID ARTHRITIS
     Dosage: 11 MG, 1X/DAY
     Route: 048
     Dates: start: 20170314
  2. PREVACID [Concomitant]
     Active Substance: LANSOPRAZOLE
     Indication: GASTROOESOPHAGEAL REFLUX DISEASE
     Dosage: 30 MG, 2X/DAY
  3. NYSTATIN. [Concomitant]
     Active Substance: NYSTATIN
     Indication: CANDIDA INFECTION
     Dosage: 20 ML, AS NEEDED (2 SPOONS 10 ML )
     Dates: start: 2007
  4. HYDROCODONE BITARTRATE AND ACETAMINOPHEN [Concomitant]
     Active Substance: ACETAMINOPHEN\HYDROCODONE BITARTRATE
     Indication: SPINAL PAIN
     Dosage: UNK UNK, 4X/DAY [HYDROCODONE BITARTRATE: 7.5 MG;  PARACETAMOL: 325 MG]
     Route: 048
  5. ESTRADIOL. [Concomitant]
     Active Substance: ESTRADIOL
     Indication: HYSTERECTOMY
     Dosage: 1 MG, 1X/DAY
     Route: 048
     Dates: start: 1988
  6. SPIRIVA [Concomitant]
     Active Substance: TIOTROPIUM BROMIDE MONOHYDRATE
     Indication: CHRONIC OBSTRUCTIVE PULMONARY DISEASE
     Dosage: 18 UG, 1X/DAY
     Dates: start: 2010
  7. XARELTO [Concomitant]
     Active Substance: RIVAROXABAN
     Dosage: 15 MG, UNK
  8. PREDNISONE. [Concomitant]
     Active Substance: PREDNISONE
     Indication: RHEUMATOID ARTHRITIS
     Dosage: 5 MG, 1X/DAY
     Route: 048
     Dates: start: 2007
  9. AMLODIPINE [Concomitant]
     Active Substance: AMLODIPINE BESYLATE
     Indication: RAYNAUD^S PHENOMENON
     Dosage: 5 MG, 1X/DAY
     Route: 048
     Dates: start: 2007
  10. LEVOTHYROXINE. [Concomitant]
     Active Substance: LEVOTHYROXINE
     Indication: HYPOTHYROIDISM
     Dosage: 50 UG, 1X/DAY
     Route: 048
     Dates: start: 2007
  11. PROAIR HFA [Concomitant]
     Active Substance: ALBUTEROL SULFATE
     Indication: CHRONIC OBSTRUCTIVE PULMONARY DISEASE
     Dosage: UNK UNK, 4X/DAY (2 PUFFS 4 TIMES A DAY)
     Dates: start: 2010
  12. XELJANZ XR [Suspect]
     Active Substance: TOFACITINIB CITRATE
     Dosage: 11 MG, 1X/DAY
     Route: 048
     Dates: start: 20170314
  13. PREDNISONE. [Concomitant]
     Active Substance: PREDNISONE
     Indication: CHRONIC OBSTRUCTIVE PULMONARY DISEASE
  14. ALBUTEROL. [Concomitant]
     Active Substance: ALBUTEROL
     Indication: CHRONIC OBSTRUCTIVE PULMONARY DISEASE
     Dosage: UNK  (NEBULIZER ONE VIAL EVERY 4 TO 6 HOURS 2.5MG/3ML)
     Dates: start: 2010
  15. XARELTO [Concomitant]
     Active Substance: RIVAROXABAN
     Indication: ANTICOAGULANT THERAPY
     Dosage: 10 MG, 1X/DAY
     Dates: start: 20160803
  16. SIMPONI [Concomitant]
     Active Substance: GOLIMUMAB
     Dosage: UNK
  17. SYMBICORT [Concomitant]
     Active Substance: BUDESONIDE\FORMOTEROL FUMARATE DIHYDRATE
     Indication: CHRONIC OBSTRUCTIVE PULMONARY DISEASE
     Dosage: UNK UNK, 2X/DAY (BUDESONIDE- 60MCG, FORMOTEROL FUMARATE- 4.5MCG) (INHALER 2 PUFF)
     Dates: start: 20160106

REACTIONS (13)
  - Scleroderma [Unknown]
  - Skin exfoliation [Not Recovered/Not Resolved]
  - Pruritus [Not Recovered/Not Resolved]
  - Skin haemorrhage [Not Recovered/Not Resolved]
  - Skin disorder [Recovered/Resolved with Sequelae]
  - Skin fissures [Unknown]
  - Dry skin [Not Recovered/Not Resolved]
  - Skin exfoliation [Unknown]
  - Condition aggravated [Unknown]
  - Condition aggravated [Not Recovered/Not Resolved]
  - Neoplasm skin [Recovered/Resolved with Sequelae]
  - Alopecia [Not Recovered/Not Resolved]
  - Condition aggravated [Unknown]

NARRATIVE: CASE EVENT DATE: 201703
